FAERS Safety Report 8214111-6 (Version None)
Quarter: 2012Q1

REPORT INFORMATION
  Report Type: 
  Country: None (occurrence: None)
  Receive Date: 20120314
  Receipt Date: 20120314
  Transmission Date: 20120608
  Serious: Yes (Hospitalization)
  Sender: FDA-Public Use
  Company Number: None

PATIENT
  Age: 80 Year
  Sex: Male
  Weight: 87.1 kg

DRUGS (15)
  1. PULMICORT [Concomitant]
  2. METOPROLOL SUCCINATE [Concomitant]
  3. ALBUTEROL [Concomitant]
  4. FEXOFENADINE [Concomitant]
  5. LASIX [Concomitant]
  6. FERROUS SULFATE TAB [Concomitant]
  7. EXELON [Concomitant]
  8. ALFUZOSIN HCL [Concomitant]
  9. M.V.I. [Concomitant]
  10. TRIAMCINOLONE [Concomitant]
  11. SPIRIVA [Concomitant]
  12. OMEPRAZOLE [Concomitant]
  13. ROSUVASTATIN [Concomitant]
  14. COUMADIN [Suspect]
     Indication: ATRIAL FIBRILLATION
     Dosage: 4MG DAILY PO CHRONIC
     Route: 048
  15. AVAPRO [Concomitant]

REACTIONS (3)
  - HAEMORRHAGIC ANAEMIA [None]
  - INTERNATIONAL NORMALISED RATIO INCREASED [None]
  - ARTERIOVENOUS MALFORMATION [None]
